FAERS Safety Report 18986869 (Version 1)
Quarter: 2021Q1

REPORT INFORMATION
  Report Type: Spontaneous
  Country: US (occurrence: US)
  Receive Date: 20210308
  Receipt Date: 20210308
  Transmission Date: 20210420
  Serious: Yes (Other)
  Sender: FDA-Public Use
  Company Number: None

PATIENT
  Age: 44 Year
  Sex: Female
  Weight: 53.07 kg

DRUGS (2)
  1. OLANZAPINE (OLANZAPINE 10MG TAB) [Suspect]
     Active Substance: OLANZAPINE
     Route: 048
     Dates: start: 20200921, end: 20200925
  2. HALOPERIDOL (HALOPERIDOL 5MG TAB) [Suspect]
     Active Substance: HALOPERIDOL
     Indication: SCHIZOAFFECTIVE DISORDER
     Route: 048
     Dates: start: 20200921, end: 20200925

REACTIONS (1)
  - Hyperprolactinaemia [None]

NARRATIVE: CASE EVENT DATE: 20200924
